FAERS Safety Report 7710370-4 (Version None)
Quarter: 2011Q3

REPORT INFORMATION
  Report Type: 
  Country: None (occurrence: None)
  Receive Date: 20110825
  Receipt Date: 20110427
  Transmission Date: 20111222
  Serious: No
  Sender: FDA-Public Use
  Company Number: US-BAYER-2011-036929

PATIENT
  Age: 50 Year
  Sex: Female

DRUGS (1)
  1. MIRENA [Suspect]
     Indication: MENORRHAGIA
     Dosage: 20 MCG/24HR, CONT
     Route: 015
     Dates: start: 20090407

REACTIONS (5)
  - PYREXIA [None]
  - PAIN [None]
  - PELVIC PAIN [None]
  - VAGINAL HAEMORRHAGE [None]
  - CHILLS [None]
